FAERS Safety Report 9320997 (Version 2)
Quarter: 2013Q2

REPORT INFORMATION
  Report Type: Spontaneous
  Country: IL (occurrence: None)
  Receive Date: 20130528
  Receipt Date: 20130528
  Transmission Date: 20140414
  Serious: Yes (Other)
  Sender: FDA-Public Use
  Company Number: 2012AP001461

PATIENT
  Age: 46 Year
  Sex: Female

DRUGS (2)
  1. FERRIPROX [Suspect]
     Indication: THALASSAEMIA BETA
     Dates: start: 201204, end: 20120501
  2. DESFERAL [Concomitant]

REACTIONS (1)
  - Agranulocytosis [None]
